FAERS Safety Report 10424522 (Version 1)
Quarter: 2014Q3

REPORT INFORMATION
  Report Type: Spontaneous
  Country: US (occurrence: None)
  Receive Date: 20140722
  Receipt Date: 20140722
  Transmission Date: 20150326
  Serious: No
  Sender: FDA-Public Use
  Company Number: AEGR000486

PATIENT
  Age: 64 Year
  Sex: Female
  Weight: 100.2 kg

DRUGS (1)
  1. JUXTAPID [Suspect]
     Active Substance: LOMITAPIDE MESYLATE
     Indication: TYPE IIA HYPERLIPIDAEMIA
     Route: 048
     Dates: start: 201403, end: 20140503

REACTIONS (2)
  - Fibromyalgia [None]
  - Pain in extremity [None]

NARRATIVE: CASE EVENT DATE: 20140501
